FAERS Safety Report 16187594 (Version 1)
Quarter: 2019Q2

REPORT INFORMATION
  Report Type: Spontaneous
  Country: GB (occurrence: GB)
  Receive Date: 20190412
  Receipt Date: 20190412
  Transmission Date: 20190711
  Serious: Yes (Hospitalization, Other)
  Sender: FDA-Public Use
  Company Number: GB-SA-2019SA096886

PATIENT
  Age: 48 Year
  Sex: Female
  Weight: 82.55 kg

DRUGS (2)
  1. FEXOFENADINE [Suspect]
     Active Substance: FEXOFENADINE\FEXOFENADINE HYDROCHLORIDE
     Dosage: 180 DF, UNK
     Route: 048
     Dates: start: 20180929, end: 20190312
  2. PIRITON [Concomitant]
     Active Substance: CHLORPHENIRAMINE MALEATE

REACTIONS (1)
  - Miosis [Not Recovered/Not Resolved]

NARRATIVE: CASE EVENT DATE: 20190311
